FAERS Safety Report 12308748 (Version 1)
Quarter: 2016Q2

REPORT INFORMATION
  Report Type: Spontaneous
  Country: US (occurrence: None)
  Receive Date: 20160426
  Receipt Date: 20160426
  Transmission Date: 20160815
  Serious: No
  Sender: FDA-Public Use
  Company Number: None

PATIENT
  Age: 67 Year
  Sex: Female

DRUGS (1)
  1. HYQVIA [Suspect]
     Active Substance: HUMAN IMMUNOGLOBULIN G\HYALURONIDASE RECOMBINANT HUMAN
     Indication: IMMUNODEFICIENCY COMMON VARIABLE
     Dosage: 30GRAMS EVERY 4 WEEKS SQ
     Route: 058
     Dates: start: 20160219

REACTIONS (4)
  - Chills [None]
  - Headache [None]
  - Nausea [None]
  - Meningitis aseptic [None]

NARRATIVE: CASE EVENT DATE: 20160320
